FAERS Safety Report 8157363-3 (Version None)
Quarter: 2012Q1

REPORT INFORMATION
  Report Type: 
  Country: None (occurrence: None)
  Receive Date: 20120103
  Receipt Date: 20110929
  Transmission Date: 20120608
  Serious: No
  Sender: FDA-Public Use
  Company Number: AE-2011-001935

PATIENT
  Age: 50 Year
  Sex: Female
  Weight: 87.0906 kg

DRUGS (11)
  1. INCIVEK [Suspect]
     Dosage: 2250 MG (750 MG,1 IN 8 HR) ,ORAL
     Route: 048
     Dates: start: 20110923
  2. RIBAVIRIN [Concomitant]
  3. ABILIFY [Concomitant]
  4. VITAMIN B12 [Concomitant]
  5. PEGASYS [Concomitant]
  6. SOMA [Concomitant]
  7. SEROQUEL [Concomitant]
  8. WELLBUTRIN [Concomitant]
  9. OMEPRAZOLE [Concomitant]
  10. ADDERALL (OBETROL) [Concomitant]
  11. NORCO [Concomitant]

REACTIONS (1)
  - INAPPROPRIATE SCHEDULE OF DRUG ADMINISTRATION [None]
